FAERS Safety Report 9644649 (Version 1)
Quarter: 2013Q4

REPORT INFORMATION
  Report Type: Spontaneous
  Country: US (occurrence: US)
  Receive Date: 20131025
  Receipt Date: 20131025
  Transmission Date: 20140711
  Serious: No
  Sender: FDA-Public Use
  Company Number: US-009507513-1310USA007142

PATIENT
  Sex: Female

DRUGS (7)
  1. PEGINTRON [Suspect]
     Indication: CHRONIC HEPATITIS C
     Dosage: REDIPEN 150 MICROGRAM, QW
     Route: 058
     Dates: start: 2013
  2. RIBASPHERE [Suspect]
  3. INCIVEK [Suspect]
  4. REQUIP [Concomitant]
  5. ZANTAC [Concomitant]
  6. CLONIDINE [Concomitant]
  7. DOXEPIN HYDROCHLORIDE [Concomitant]

REACTIONS (1)
  - Dry mouth [Not Recovered/Not Resolved]
